FAERS Safety Report 5936001-1 (Version None)
Quarter: 2008Q4

REPORT INFORMATION
  Report Type: 
  Country: None (occurrence: None)
  Receive Date: 20081030
  Receipt Date: 20081027
  Transmission Date: 20090506
  Serious: Yes (Life-Threatening)
  Sender: FDA-Public Use
  Company Number: JP-ASTRAZENECA-2008AP05443

PATIENT
  Age: 56 Year
  Sex: Female
  Weight: 53 kg

DRUGS (2)
  1. CRESTOR [Suspect]
     Indication: HYPERLIPIDAEMIA
     Route: 048
     Dates: start: 20071207, end: 20080630
  2. OMEPRAZOLE [Concomitant]
     Indication: GASTRIC ULCER
     Route: 048
     Dates: start: 20080601, end: 20080630

REACTIONS (12)
  - ATROPHY [None]
  - BLOOD UREA INCREASED [None]
  - CYTOMEGALOVIRUS ANTIGEN POSITIVE [None]
  - DRUG INEFFECTIVE [None]
  - EPSTEIN-BARR VIRUS ANTIGEN POSITIVE [None]
  - GALLBLADDER DISORDER [None]
  - HEPATIC ATROPHY [None]
  - HEPATITIS [None]
  - HEPATITIS ACUTE [None]
  - PERITONITIS BACTERIAL [None]
  - PLATELET COUNT DECREASED [None]
  - ULTRASOUND SCAN ABNORMAL [None]
